FAERS Safety Report 23623928 (Version 1)
Quarter: 2024Q1

REPORT INFORMATION
  Report Type: Spontaneous
  Country: FR (occurrence: FR)
  Receive Date: 20240312
  Receipt Date: 20240312
  Transmission Date: 20240409
  Serious: Yes (Hospitalization)
  Sender: FDA-Public Use
  Company Number: None

PATIENT
  Age: 35 Year
  Sex: Male

DRUGS (8)
  1. METOCLOPRAMIDE [Suspect]
     Active Substance: METOCLOPRAMIDE
     Indication: Nausea
     Dosage: 10 GRAM, Q8H IF NECESSARY
     Route: 048
     Dates: start: 20231128, end: 20231222
  2. MOXIFLOXACIN [Suspect]
     Active Substance: MOXIFLOXACIN
     Indication: Product used for unknown indication
     Dosage: 400 MILLIGRAM, QD
     Route: 048
     Dates: start: 20231121, end: 20240214
  3. ACETAMINOPHEN [Suspect]
     Active Substance: ACETAMINOPHEN
     Indication: Analgesic intervention supportive therapy
     Dosage: 1 GRAM, Q6H IF NECESSARY
     Route: 048
     Dates: start: 20231117, end: 20240214
  4. ISONIAZID [Suspect]
     Active Substance: ISONIAZID
     Indication: Pulmonary tuberculosis
     Dosage: 600 MILLIGRAM, QD
     Route: 048
     Dates: start: 20231114, end: 20231121
  5. PYRAZINAMIDE [Suspect]
     Active Substance: PYRAZINAMIDE
     Indication: Pulmonary tuberculosis
     Dosage: 1000 MILLIGRAM, QD
     Route: 048
     Dates: start: 20231114, end: 20240214
  6. ETHAMBUTOL [Suspect]
     Active Substance: ETHAMBUTOL HYDROCHLORIDE
     Indication: Pulmonary tuberculosis
     Dosage: 1000 MILLIGRAM, QD
     Route: 048
     Dates: start: 20231114, end: 20231208
  7. RIFAMPIN [Suspect]
     Active Substance: RIFAMPIN
     Indication: Pulmonary tuberculosis
     Dosage: 600 MILLIGRAM, QD
     Route: 048
     Dates: start: 20231114, end: 20240104
  8. PANTOPRAZOLE [Suspect]
     Active Substance: PANTOPRAZOLE
     Indication: Product used for unknown indication
     Dosage: 40 MILLIGRAM, QD
     Route: 042
     Dates: start: 20231208, end: 20231219

REACTIONS (1)
  - Neutropenia [Recovered/Resolved]

NARRATIVE: CASE EVENT DATE: 20231213
